FAERS Safety Report 5034002-1 (Version None)
Quarter: 2006Q2

REPORT INFORMATION
  Report Type: 
  Country: None (occurrence: None)
  Receive Date: 20060626
  Receipt Date: 20060116
  Transmission Date: 20061013
  Serious: Yes (Hospitalization, Other)
  Sender: FDA-Public Use
  Company Number: PHNR2006AU00474

PATIENT
  Sex: Female

DRUGS (1)
  1. LAMISIL [Suspect]
     Indication: NAIL INFECTION
     Dosage: UNK, UNK
     Dates: end: 20051201

REACTIONS (8)
  - BLISTER [None]
  - COITAL BLEEDING [None]
  - GENITAL HAEMORRHAGE [None]
  - HAEMORRHAGE [None]
  - LUPUS-LIKE SYNDROME [None]
  - PHOTOSENSITIVITY REACTION [None]
  - RASH GENERALISED [None]
  - VAGINAL HAEMORRHAGE [None]
